FAERS Safety Report 23994129 (Version 1)
Quarter: 2024Q2

REPORT INFORMATION
  Report Type: Spontaneous
  Country: US (occurrence: US)
  Receive Date: 20240620
  Receipt Date: 20240620
  Transmission Date: 20240716
  Serious: No
  Sender: FDA-Public Use
  Company Number: US-BAYER-2024A085383

PATIENT
  Age: 33 Year
  Sex: Female

DRUGS (1)
  1. MIRALAX [Suspect]
     Active Substance: POLYETHYLENE GLYCOL 3350
     Indication: Gastrointestinal disorder
     Dosage: 1 CAPFUL (17G) IN A DAY DOSE
     Route: 048
     Dates: start: 20240610

REACTIONS (2)
  - Dysgeusia [Recovered/Resolved]
  - Product taste abnormal [None]
